FAERS Safety Report 6807413-9 (Version None)
Quarter: 2010Q2

REPORT INFORMATION
  Report Type: 
  Country: None (occurrence: None)
  Receive Date: 20100629
  Receipt Date: 20080916
  Transmission Date: 20101027
  Serious: No
  Sender: FDA-Public Use
  Company Number: US-PFIZER INC-2008078242

PATIENT
  Sex: Female

DRUGS (13)
  1. ZYVOX [Suspect]
     Indication: STAPHYLOCOCCAL INFECTION
     Route: 048
     Dates: start: 20080912
  2. VANCOMYCIN [Suspect]
  3. GABAPENTIN [Concomitant]
  4. BACLOFEN [Concomitant]
  5. AMBIEN [Concomitant]
  6. MIACALCIN [Concomitant]
  7. WARFARIN [Concomitant]
  8. GENOTROPIN [Concomitant]
  9. FLUCONAZOLE [Concomitant]
  10. CENTRUM SILVER [Concomitant]
  11. ANTIDIARRHOEAL MICROORGANISMS [Concomitant]
  12. NIACIN [Concomitant]
  13. MULTIVITAMIN [Concomitant]

REACTIONS (2)
  - DRUG HYPERSENSITIVITY [None]
  - HEADACHE [None]
